FAERS Safety Report 8169146-9 (Version None)
Quarter: 2012Q1

REPORT INFORMATION
  Report Type: 
  Country: None (occurrence: None)
  Receive Date: 20120227
  Receipt Date: 20120214
  Transmission Date: 20120608
  Serious: Yes (Other)
  Sender: FDA-Public Use
  Company Number: CA-ROCHE-1040583

PATIENT
  Sex: Male
  Weight: 70.37 kg

DRUGS (6)
  1. OXYCODONE HCL [Concomitant]
     Indication: PAIN
     Dosage: 5MG/325MG 4 TIMES DAILY
     Route: 048
  2. ARTHROTEC [Concomitant]
     Route: 048
  3. ZOPICLONE [Concomitant]
  4. TRAZODONE HCL [Concomitant]
  5. MORPHINE [Concomitant]
     Indication: PAIN
  6. ACTEMRA [Suspect]
     Indication: RHEUMATOID ARTHRITIS
     Route: 042
     Dates: start: 20111213

REACTIONS (2)
  - ARTHRALGIA [None]
  - SUICIDAL IDEATION [None]
